FAERS Safety Report 21252457 (Version 1)
Quarter: 2022Q3

REPORT INFORMATION
  Report Type: Report from Study
  Country: US (occurrence: US)
  Receive Date: 20220825
  Receipt Date: 20220825
  Transmission Date: 20221027
  Serious: Yes (Life-Threatening, Hospitalization, Other)
  Sender: FDA-Public Use
  Company Number: US-BRISTOL-MYERS SQUIBB COMPANY-2022-083218

PATIENT
  Age: 60 Year
  Sex: Male
  Weight: 86.2 kg

DRUGS (10)
  1. CARBOPLATIN [Suspect]
     Active Substance: CARBOPLATIN
     Indication: Prostate cancer
     Dosage: AUC=4, Q3 WEEKS, AUC=3, Q3 WEEKS
     Route: 042
     Dates: start: 20220711, end: 20220711
  2. IPILIMUMAB [Suspect]
     Active Substance: IPILIMUMAB
     Indication: Prostate cancer
     Route: 042
     Dates: start: 20220711, end: 20220711
  3. NIVOLUMAB [Suspect]
     Active Substance: NIVOLUMAB
     Indication: Prostate cancer
     Route: 065
     Dates: start: 20220711, end: 20220711
  4. CABAZITAXEL [Suspect]
     Active Substance: CABAZITAXEL
     Indication: Prostate cancer
     Route: 065
     Dates: start: 20220711
  5. ERLEADA [Concomitant]
     Active Substance: APALUTAMIDE
     Indication: Prostate cancer
     Route: 048
     Dates: start: 20220401, end: 20220601
  6. DURAGESIC [Concomitant]
     Active Substance: FENTANYL
     Indication: Bone pain
     Route: 061
     Dates: start: 20220711
  7. NEURONTIN [Concomitant]
     Active Substance: GABAPENTIN
     Indication: Bone pain
     Dosage: 300 MG THREE TIMES A DAY
     Route: 048
     Dates: start: 20220711
  8. NORCO [Concomitant]
     Active Substance: ACETAMINOPHEN\HYDROCODONE BITARTRATE
     Indication: Bone pain
     Dosage: 10-325 MG, PRN
     Route: 048
     Dates: start: 20210712
  9. FIRMAGON [Concomitant]
     Active Substance: DEGARELIX ACETATE
     Indication: Androgen therapy
     Dosage: 10-325MG, PRN
     Route: 058
     Dates: start: 20210728
  10. XGEVA [Concomitant]
     Active Substance: DENOSUMAB
     Indication: Androgen therapy
     Dosage: 10-325MG, PRN
     Route: 058
     Dates: start: 20210721

REACTIONS (2)
  - Haematoma [Recovered/Resolved]
  - Spinal cord compression [Recovered/Resolved with Sequelae]

NARRATIVE: CASE EVENT DATE: 20220727
